FAERS Safety Report 8377695-3 (Version None)
Quarter: 2012Q2

REPORT INFORMATION
  Report Type: 
  Country: None (occurrence: None)
  Receive Date: 20120522
  Receipt Date: 20120518
  Transmission Date: 20120825
  Serious: Yes (Other)
  Sender: FDA-Public Use
  Company Number: US-GLAXOSMITHKLINE-A0941082A

PATIENT
  Sex: Female

DRUGS (2)
  1. VENTOLIN [Suspect]
     Indication: ASTHMA
     Route: 055
  2. PROVENTIL [Suspect]
     Indication: ASTHMA
     Route: 055

REACTIONS (3)
  - DRUG INEFFECTIVE [None]
  - ASTHMA [None]
  - PRODUCT QUALITY ISSUE [None]
